FAERS Safety Report 18210449 (Version 1)
Quarter: 2020Q3

REPORT INFORMATION
  Report Type: Spontaneous
  Country: DE (occurrence: DE)
  Receive Date: 20200829
  Receipt Date: 20200829
  Transmission Date: 20201103
  Serious: Yes (Other)
  Sender: FDA-Public Use
  Company Number: DE-TEVA-2020-DE-1819671

PATIENT
  Age: 56 Year
  Sex: Female
  Weight: 48 kg

DRUGS (3)
  1. TARGIN [Concomitant]
     Active Substance: NALOXONE HYDROCHLORIDE\OXYCODONE HYDROCHLORIDE
     Indication: NEURALGIA
     Dosage: FOR 9 YEARS, CURRENTLY 90 MG DAILY
     Dates: start: 2011
  2. VOMEX [Concomitant]
     Active Substance: DIMENHYDRINATE
     Dosage: FOR 9 YEARS
     Dates: start: 2011
  3. ZOLPIDEM [Suspect]
     Active Substance: ZOLPIDEM TARTRATE
     Indication: SLEEP DISORDER
     Route: 048

REACTIONS (7)
  - Fall [Recovered/Resolved]
  - Malaise [Recovered/Resolved]
  - Hallucination [Recovered/Resolved]
  - Muscular weakness [Recovered/Resolved]
  - Disorientation [Recovered/Resolved]
  - Wrong product administered [Unknown]
  - Loss of consciousness [Recovered/Resolved]

NARRATIVE: CASE EVENT DATE: 2020
